FAERS Safety Report 4746676-0 (Version None)
Quarter: 2005Q3

REPORT INFORMATION
  Report Type: 
  Country: None (occurrence: None)
  Receive Date: 20050815
  Receipt Date: 20050802
  Transmission Date: 20060218
  Serious: Yes (Hospitalization, Other)
  Sender: FDA-Public Use
  Company Number: 2005100005

PATIENT
  Sex: Female
  Weight: 52.1637 kg

DRUGS (3)
  1. XANAX [Suspect]
     Indication: PANIC DISORDER WITH AGORAPHOBIA
     Dosage: 2 MG (0.5 MG, 4 IN 1 D), ORAL
     Route: 048
     Dates: start: 19930101
  2. ALPRAZOLAM [Suspect]
     Indication: ILL-DEFINED DISORDER
  3. ELMIRON [Suspect]
     Indication: CYSTITIS INTERSTITIAL
     Dates: start: 20010101

REACTIONS (13)
  - BREAST CANCER [None]
  - CYSTITIS INTERSTITIAL [None]
  - GINGIVAL PAIN [None]
  - HEADACHE [None]
  - NASOPHARYNGITIS [None]
  - ORAL PAIN [None]
  - PARAESTHESIA ORAL [None]
  - PHARMACEUTICAL PRODUCT COMPLAINT [None]
  - PHARYNGOLARYNGEAL PAIN [None]
  - PRECANCEROUS CELLS PRESENT [None]
  - SOMNOLENCE [None]
  - VULVAL DISORDER [None]
  - WEIGHT INCREASED [None]
